FAERS Safety Report 5286720-8 (Version None)
Quarter: 2007Q1

REPORT INFORMATION
  Report Type: 
  Country: None (occurrence: None)
  Receive Date: 20070116
  Receipt Date: 20061113
  Transmission Date: 20070707
  Serious: No
  Sender: FDA-Public Use
  Company Number: 2006SP004025

PATIENT
  Age: 75 Year
  Sex: Male
  Weight: 87.9978 kg

DRUGS (8)
  1. LUNESTA [Suspect]
     Indication: INSOMNIA
     Dosage: 2 MG; ORAL
     Route: 048
     Dates: start: 20061101
  2. ASPIRIN [Concomitant]
  3. VITAMIN B6 [Concomitant]
  4. LEVOTHYROXINE SODIUM [Concomitant]
  5. VITAMIN CAP [Concomitant]
  6. OCUVITE [Concomitant]
  7. ATORVASTATIN CALCIUM [Concomitant]
  8. SONATA [Concomitant]

REACTIONS (1)
  - MIDDLE INSOMNIA [None]
